FAERS Safety Report 17028388 (Version 1)
Quarter: 2019Q4

REPORT INFORMATION
  Report Type: Other
  Country: US (occurrence: US)
  Receive Date: 20191113
  Receipt Date: 20191113
  Transmission Date: 20200122
  Serious: Yes (Life-Threatening, Hospitalization)
  Sender: FDA-Public Use
  Company Number: US-C B FLEET CO INC-201911-US-003618

PATIENT
  Age: 30 Year
  Sex: Female
  Weight: 135 kg

DRUGS (2)
  1. ACETAMINOPHEN. [Suspect]
     Active Substance: ACETAMINOPHEN
     Indication: SUICIDE ATTEMPT
     Dosage: ESTIMATED ACETAMINOPHEN INTAKE WAS 125 GRAMS
     Route: 048
  2. DIPHENHYDRAMINE HCL [Suspect]
     Active Substance: DIPHENHYDRAMINE HYDROCHLORIDE
     Indication: SUICIDE ATTEMPT
     Dosage: DOSAGE UNKNOWN

REACTIONS (4)
  - Confusional state [Unknown]
  - Areflexia [Unknown]
  - Intentional overdose [None]
  - Suicide attempt [Unknown]
